FAERS Safety Report 8800993 (Version 3)
Quarter: 2014Q3

REPORT INFORMATION
  Report Type: Report from Study
  Country: US (occurrence: US)
  Receive Date: 20120920
  Receipt Date: 20140827
  Transmission Date: 20150326
  Serious: Yes (Other)
  Sender: FDA-Public Use
  Company Number: US-009507513-1209USA007912

PATIENT
  Age: 75 Year
  Weight: 40.2 kg

DRUGS (1)
  1. HEXADROL [Suspect]
     Active Substance: DEXAMETHASONE
     Indication: PRODUCT USED FOR UNKNOWN INDICATION
     Dosage: 20 MG, QD (7 DAYS A WEEK)
     Route: 048
     Dates: start: 20110317

REACTIONS (2)
  - Plasma cell myeloma [Unknown]
  - Renal failure acute [Unknown]

NARRATIVE: CASE EVENT DATE: 20110505
